FAERS Safety Report 5085118-5 (Version None)
Quarter: 2006Q3

REPORT INFORMATION
  Report Type: 
  Country: None (occurrence: None)
  Receive Date: 20060720
  Receipt Date: 20060119
  Transmission Date: 20061208
  Serious: Yes (Hospitalization, Other)
  Sender: FDA-Public Use
  Company Number: 2006055863

PATIENT
  Age: 64 Year
  Sex: Female

DRUGS (9)
  1. CELEBREX [Suspect]
     Indication: ILL-DEFINED DISORDER
     Dosage: 200 MG (200 MG,1 IN 1 D)
  2. ZANTAC [Concomitant]
  3. NITROGLYCERIN [Concomitant]
  4. METOPROLOL (METOPROLOL) [Concomitant]
  5. DOXEPIN HYDROCHLORIDE (DOXEPIN) [Concomitant]
  6. LORTAB [Concomitant]
  7. ISOSORBIDE (ISOSORBIDE) [Concomitant]
  8. CAPTOPRIL [Concomitant]
  9. HUMULIN N [Concomitant]

REACTIONS (2)
  - CEREBROVASCULAR ACCIDENT [None]
  - MYOCARDIAL INFARCTION [None]
